FAERS Safety Report 13275595 (Version 1)
Quarter: 2017Q1

REPORT INFORMATION
  Report Type: Spontaneous
  Country: US (occurrence: US)
  Receive Date: 20170225
  Receipt Date: 20170225
  Transmission Date: 20170428
  Serious: Yes (Hospitalization)
  Sender: FDA-Public Use
  Company Number: None

PATIENT
  Age: 58 Year
  Sex: Female
  Weight: 88 kg

DRUGS (1)
  1. ERBITUX [Suspect]
     Active Substance: CETUXIMAB
     Dates: end: 20130318

REACTIONS (4)
  - Stomatitis [None]
  - Vomiting [None]
  - Orthostatic hypotension [None]
  - Nausea [None]

NARRATIVE: CASE EVENT DATE: 20130320
